FAERS Safety Report 9015318 (Version 1)
Quarter: 2013Q1

REPORT INFORMATION
  Report Type: Spontaneous
  Country: US (occurrence: None)
  Receive Date: 20130109
  Receipt Date: 20130109
  Transmission Date: 20140127
  Serious: Yes (Life-Threatening, Hospitalization)
  Sender: FDA-Public Use
  Company Number: None

PATIENT
  Sex: Female
  Weight: 108.86 kg

DRUGS (2)
  1. PIOGLITAZONE [Suspect]
     Indication: BLOOD PRESSURE
     Dosage: 1 TABLET DAILY
     Dates: start: 201107, end: 201211
  2. PIOGLITAZONE [Suspect]
     Indication: DIABETES MELLITUS
     Dosage: 1 TABLET DAILY
     Dates: start: 201107, end: 201211

REACTIONS (15)
  - Dyspnoea exertional [None]
  - Swelling [None]
  - Weight increased [None]
  - Chest pain [None]
  - Malaise [None]
  - Nausea [None]
  - Abdominal pain upper [None]
  - Chromaturia [None]
  - Vision blurred [None]
  - Jaundice [None]
  - Asthenia [None]
  - Pollakiuria [None]
  - Pallor [None]
  - Myalgia [None]
  - Contusion [None]
